FAERS Safety Report 7931484-X (Version None)
Quarter: 2011Q4

REPORT INFORMATION
  Report Type: 
  Country: None (occurrence: None)
  Receive Date: 20111121
  Receipt Date: 20111115
  Transmission Date: 20120403
  Serious: Yes (Death, Other)
  Sender: FDA-Public Use
  Company Number: US-NAPPMUNDI-USA-2010-0046005

PATIENT
  Age: 24 Year
  Sex: Male

DRUGS (1)
  1. OXYCONTIN [Suspect]
     Indication: DRUG ABUSE

REACTIONS (6)
  - DRUG ABUSE [None]
  - WEIGHT DECREASED [None]
  - COMPLETED SUICIDE [None]
  - PAIN [None]
  - MALAISE [None]
  - DRUG DEPENDENCE [None]
